FAERS Safety Report 4262909-1 (Version None)
Quarter: 2004Q1

REPORT INFORMATION
  Report Type: 
  Country: None (occurrence: None)
  Receive Date: 20040105
  Receipt Date: 20031030
  Transmission Date: 20041129
  Serious: Yes (Hospitalization)
  Sender: FDA-Public Use
  Company Number: 200321123GDDC

PATIENT
  Age: 66 Year
  Sex: Male

DRUGS (14)
  1. CAMPTOSAR [Suspect]
     Indication: OESOPHAGEAL CARCINOMA
     Route: 042
     Dates: start: 20030922, end: 20031013
  2. TAXOTERE [Suspect]
     Indication: OESOPHAGEAL CARCINOMA
     Route: 042
     Dates: start: 20030922, end: 20031013
  3. FLUOROURACIL [Suspect]
     Indication: OESOPHAGEAL CARCINOMA
     Route: 042
     Dates: start: 20030922, end: 20031016
  4. RADIATION [Suspect]
     Indication: DRUG USE FOR UNKNOWN INDICATION
     Dosage: DOSE: 5040 CGY
     Dates: start: 20030922, end: 20031016
  5. PRILOSEC [Concomitant]
  6. ZOFRAN [Concomitant]
  7. MARINOL [Concomitant]
  8. PEPCID [Concomitant]
  9. LISINOPRIL [Concomitant]
  10. INSULIN [Concomitant]
  11. SOLUTIONS FOR PARENTERAL NUTRITION [Concomitant]
  12. ATIVAN [Concomitant]
  13. BENADRYL [Concomitant]
  14. HALDOL [Concomitant]

REACTIONS (15)
  - ACUTE RESPIRATORY DISTRESS SYNDROME [None]
  - ATRIAL FLUTTER [None]
  - BACTERAEMIA [None]
  - BUNDLE BRANCH BLOCK LEFT [None]
  - CARCINOID TUMOUR [None]
  - DEHYDRATION [None]
  - DIZZINESS [None]
  - FATIGUE [None]
  - GASTROINTESTINAL STROMAL TUMOUR [None]
  - HYPOTENSION [None]
  - PNEUMONIA [None]
  - PULMONARY EMBOLISM [None]
  - STAPHYLOCOCCAL INFECTION [None]
  - TACHYCARDIA [None]
  - VENTRICULAR HYPERTROPHY [None]
